FAERS Safety Report 7065507-X (Version None)
Quarter: 2010Q4

REPORT INFORMATION
  Report Type: 
  Country: None (occurrence: None)
  Receive Date: 20101027
  Receipt Date: 20101015
  Transmission Date: 20110411
  Serious: Yes (Other)
  Sender: FDA-Public Use
  Company Number: US-PFIZER INC-2010132072

PATIENT
  Sex: Female
  Weight: 43.084 kg

DRUGS (4)
  1. LYRICA [Suspect]
     Indication: NEURALGIA
     Dosage: 50 MG, 1X/DAY
     Route: 048
     Dates: start: 20101013
  2. LORAZEPAM [Suspect]
     Dosage: UNK
     Dates: end: 20101014
  3. ZYRTEC-D 12 HOUR [Concomitant]
     Indication: SINUS DISORDER
     Dosage: UNK
  4. ZYRTEC-D 12 HOUR [Concomitant]
     Indication: HYPERSENSITIVITY

REACTIONS (6)
  - ABDOMINAL PAIN UPPER [None]
  - DIARRHOEA [None]
  - DRY MOUTH [None]
  - FATIGUE [None]
  - NAUSEA [None]
  - SOMNOLENCE [None]
